FAERS Safety Report 6065265-1 (Version None)
Quarter: 2009Q1

REPORT INFORMATION
  Report Type: 
  Country: None (occurrence: None)
  Receive Date: 20090204
  Receipt Date: 20090123
  Transmission Date: 20090719
  Serious: Yes (Other)
  Sender: FDA-Public Use
  Company Number: JP-ROCHE-601822

PATIENT
  Age: 12 Year
  Sex: Female

DRUGS (5)
  1. CELLCEPT [Suspect]
     Indication: PROPHYLAXIS AGAINST TRANSPLANT REJECTION
     Route: 048
  2. NEORAL [Concomitant]
     Route: 048
  3. MEDROL [Concomitant]
     Route: 048
  4. PROGRAF [Concomitant]
     Route: 048
  5. SIMULECT [Concomitant]
     Dosage: ROUTE: INJECTABLE (NOT OTHERWISE SPECIFIED)
     Route: 050

REACTIONS (1)
  - FOCAL SEGMENTAL GLOMERULOSCLEROSIS [None]
